FAERS Safety Report 8878592 (Version 1)
Quarter: 2012Q4

REPORT INFORMATION
  Report Type: 
  Country: US (occurrence: US)
  Receive Date: 20121025
  Receipt Date: 20121025
  Transmission Date: 20130627
  Serious: Yes (Hospitalization, Other)
  Sender: FDA-Public Use
  Company Number: US-AMGEN-USASP2012017869

PATIENT
  Age: 68 Year
  Sex: Male
  Weight: 70.3 kg

DRUGS (5)
  1. ENBREL [Suspect]
     Indication: RHEUMATOID ARTHRITIS
     Dosage: 40 mg, qwk
     Dates: start: 20120413
  2. ENBREL [Suspect]
     Dosage: 40 mg, qwk
     Dates: start: 20091203, end: 201203
  3. ENBREL [Suspect]
     Dosage: 50 mg, qwk
  4. METHOTREXATE [Concomitant]
     Indication: RHEUMATOID ARTHRITIS
     Dosage: 15 mg, qwk
     Route: 048
     Dates: start: 20120202, end: 201203
  5. METHOTREXATE [Concomitant]
     Dosage: 15 mg, qwk
     Route: 048
     Dates: end: 201106

REACTIONS (2)
  - Thrombocytopenia [Unknown]
  - Pancytopenia [Unknown]
